FAERS Safety Report 15728815 (Version 1)
Quarter: 2018Q4

REPORT INFORMATION
  Report Type: Spontaneous
  Country: US (occurrence: US)
  Receive Date: 20181214
  Receipt Date: 20181214
  Transmission Date: 20190205
  Serious: No
  Sender: FDA-Public Use
  Company Number: None

PATIENT
  Age: 50 Year
  Sex: Male

DRUGS (13)
  1. DESCOVY [Concomitant]
     Active Substance: EMTRICITABINE\TENOFOVIR ALAFENAMIDE FUMARATE
  2. PRAVASTATIN. [Concomitant]
     Active Substance: PRAVASTATIN
  3. ASPIRIN. [Concomitant]
     Active Substance: ASPIRIN
  4. SEROSTIM [Suspect]
     Active Substance: SOMATROPIN
     Indication: HIV WASTING SYNDROME
     Route: 058
     Dates: start: 20181022, end: 20181211
  5. SEROSTIM [Suspect]
     Active Substance: SOMATROPIN
     Indication: LIPOHYPERTROPHY
     Route: 058
     Dates: start: 20181022, end: 20181211
  6. METFORMIN [Concomitant]
     Active Substance: METFORMIN HYDROCHLORIDE
  7. MULTIVITAMIN [Concomitant]
     Active Substance: VITAMINS
  8. FISH OIL [Concomitant]
     Active Substance: FISH OIL
  9. CLARITIN [Concomitant]
     Active Substance: LORATADINE
  10. TIVICAY [Concomitant]
     Active Substance: DOLUTEGRAVIR SODIUM
  11. AMLODIPINE [Concomitant]
     Active Substance: AMLODIPINE BESYLATE
  12. LISINOPRIL/HCTZ [Concomitant]
     Active Substance: HYDROCHLOROTHIAZIDE\LISINOPRIL
  13. MYTESI [Concomitant]
     Active Substance: CROFELEMER

REACTIONS (5)
  - Blood glucose increased [None]
  - Thirst [None]
  - Dizziness [None]
  - Arthralgia [None]
  - Pollakiuria [None]

NARRATIVE: CASE EVENT DATE: 20181213
